FAERS Safety Report 12559361 (Version 2)
Quarter: 2016Q3

REPORT INFORMATION
  Report Type: Spontaneous
  Country: ES (occurrence: ES)
  Receive Date: 20160715
  Receipt Date: 20160725
  Transmission Date: 20161109
  Serious: Yes (Death, Other)
  Sender: FDA-Public Use
  Company Number: ES-ACCORD-042362

PATIENT
  Age: 65 Year
  Sex: Female

DRUGS (7)
  1. GEMCITABINE/GEMCITABINE HYDROCHLORIDE [Suspect]
     Active Substance: GEMCITABINE\GEMCITABINE HYDROCHLORIDE
     Indication: PANCREATIC CARCINOMA METASTATIC
     Dosage: DAY 1, 8 AND 15?ALSO RECEIVED 400 MG/M^2 FIRST LINE PALLIATIVE CHEMOTHERAPY IN NOV-2013 EVERY 28 DA
     Route: 042
  2. ENOXAPARIN [Concomitant]
     Active Substance: ENOXAPARIN
     Indication: HEPATIC VASCULAR THROMBOSIS
     Dosage: 1 MG/KG/12 H
     Route: 058
  3. ZOLEDRONIC ACID [Concomitant]
     Active Substance: ZOLEDRONIC ACID
     Dates: start: 2013
  4. PACLITAXEL/PACLITAXEL LIPOSOME [Suspect]
     Active Substance: PACLITAXEL
     Indication: PANCREATIC CARCINOMA METASTATIC
     Route: 042
     Dates: start: 201311
  5. PARACETAMOL [Suspect]
     Active Substance: ACETAMINOPHEN
     Indication: ANALGESIC THERAPY
  6. TEGAFUR/TEGAFUR SODIUM [Suspect]
     Active Substance: TEGAFUR
     Indication: RADIOSENSITISATION THERAPY
     Route: 048
  7. OXYCODONE/OXYCODONE HYDROCHLORIDE/OXYCODONE PECTINATE/OXYCODONE TEREPHTHALATE [Concomitant]
     Indication: ANALGESIC THERAPY
     Dosage: GRADUALLY REDUCED TO 5 MG/12 H
     Route: 048

REACTIONS (25)
  - Treatment failure [Unknown]
  - Biliary tract disorder [Unknown]
  - Metastases to spine [None]
  - Metastases to lymph nodes [None]
  - Mesenteric vein thrombosis [None]
  - Short-bowel syndrome [None]
  - HER-2 positive breast cancer [None]
  - Anaemia [Unknown]
  - Cholangitis acute [Fatal]
  - Hepatotoxicity [Unknown]
  - Neutropenia [Unknown]
  - Gastroenteritis radiation [None]
  - Asthenia [Unknown]
  - Biliary dilatation [None]
  - Refusal of treatment by patient [None]
  - Pulmonary mass [None]
  - Metastases to adrenals [None]
  - Vomiting [Unknown]
  - Oedema peripheral [Unknown]
  - Pancreatic insufficiency [None]
  - Diabetes mellitus [Unknown]
  - Lymphopenia [Unknown]
  - Toxicity to various agents [None]
  - Portal vein thrombosis [None]
  - Diarrhoea [None]
